FAERS Safety Report 8018754-4 (Version None)
Quarter: 2012Q1

REPORT INFORMATION
  Report Type: 
  Country: None (occurrence: None)
  Receive Date: 20120103
  Receipt Date: 20120103
  Transmission Date: 20120608
  Serious: Yes (Other)
  Sender: FDA-Public Use
  Company Number: None

PATIENT
  Age: 61 Year
  Sex: Female
  Weight: 116.11 kg

DRUGS (1)
  1. CLINDAMYCIN HCL [Suspect]
     Indication: CELLULITIS
     Dosage: 600 MG
     Route: 048
     Dates: start: 20110710, end: 20110711

REACTIONS (7)
  - INSOMNIA [None]
  - ILL-DEFINED DISORDER [None]
  - FEELING ABNORMAL [None]
  - RASH GENERALISED [None]
  - PRURITUS [None]
  - NO THERAPEUTIC RESPONSE [None]
  - SCAR [None]
